FAERS Safety Report 5179773-9 (Version None)
Quarter: 2006Q4

REPORT INFORMATION
  Report Type: 
  Country: None (occurrence: None)
  Receive Date: 20061212
  Receipt Date: 20061129
  Transmission Date: 20070319
  Serious: Yes (Other)
  Sender: FDA-Public Use
  Company Number: 2006149170

PATIENT
  Sex: Male

DRUGS (4)
  1. LYRICA [Suspect]
     Indication: NEUROPATHY
     Dosage: 150 MG (75 MG, 2 IN 1 D)
  2. DURAGESIC-100 [Suspect]
  3. MORPHINE SULFATE [Suspect]
  4. ILOMEDINE (ILOPROST) [Concomitant]

REACTIONS (3)
  - DRUG INTERACTION [None]
  - LOCKED-IN SYNDROME [None]
  - SOMNOLENCE [None]
